FAERS Safety Report 9316283 (Version 2)
Quarter: 2013Q2

REPORT INFORMATION
  Report Type: Report from Study
  Country: US (occurrence: US)
  Receive Date: 20130530
  Receipt Date: 20130603
  Transmission Date: 20140414
  Serious: Yes (Other)
  Sender: FDA-Public Use
  Company Number: US-ROCHE-1229600

PATIENT
  Sex: Male
  Weight: 114.41 kg

DRUGS (7)
  1. LUCENTIS [Suspect]
     Indication: AGE-RELATED MACULAR DEGENERATION
     Dosage: RIGHT EYE
     Route: 031
     Dates: start: 20061017, end: 200802
  2. LUCENTIS [Suspect]
     Dosage: LEFT EYE
     Route: 065
     Dates: start: 20080612
  3. LUCENTIS [Suspect]
     Dosage: 12 WEEKS FOR AN YEAR
     Route: 031
  4. LUCENTIS [Suspect]
     Route: 031
  5. LUCENTIS [Suspect]
     Dosage: 16 WEEKS
     Route: 031
  6. TIMOLOL MALEATE [Concomitant]
     Indication: GLAUCOMA
     Dosage: BOTH EYES, 40 YEARS AGO
     Route: 031
  7. PREDNISOLONE [Concomitant]
     Indication: GLAUCOMA
     Dosage: DROP IN BOTH EYE, 40 YEARS AGO
     Route: 031

REACTIONS (2)
  - Blindness [Unknown]
  - Glaucoma [Unknown]
